FAERS Safety Report 10262245 (Version 1)
Quarter: 2014Q2

REPORT INFORMATION
  Report Type: Spontaneous
  Country: US (occurrence: None)
  Receive Date: 20140624
  Receipt Date: 20140624
  Transmission Date: 20141212
  Serious: Yes (Disabling)
  Sender: FDA-Public Use
  Company Number: None

PATIENT
  Age: 7 Year
  Sex: Female

DRUGS (2)
  1. MONTELUKAST [Suspect]
     Indication: ASTHMA
     Dosage: 1 CHEWABLE TAB, ONCE DAILY, TAKEN BY MOUTH
     Route: 048
     Dates: end: 20140623
  2. MONTELUKAST [Suspect]
     Indication: MULTIPLE ALLERGIES
     Dosage: 1 CHEWABLE TAB, ONCE DAILY, TAKEN BY MOUTH
     Route: 048
     Dates: end: 20140623

REACTIONS (3)
  - Weight increased [None]
  - Precocious puberty [None]
  - Breast enlargement [None]
